FAERS Safety Report 4686663-4 (Version None)
Quarter: 2005Q2

REPORT INFORMATION
  Report Type: 
  Country: None (occurrence: None)
  Receive Date: 20050609
  Receipt Date: 20050606
  Transmission Date: 20051028
  Serious: Yes (Death)
  Sender: FDA-Public Use
  Company Number: 2005PK00958

PATIENT
  Age: 88 Year
  Sex: Female
  Weight: 54 kg

DRUGS (3)
  1. ATACAND [Suspect]
     Indication: HYPERTENSION
     Route: 048
     Dates: start: 20041110
  2. DIGOXIN [Concomitant]
  3. TIATRAL [Concomitant]

REACTIONS (1)
  - ILEUS [None]
